FAERS Safety Report 8354510-5 (Version None)
Quarter: 2012Q2

REPORT INFORMATION
  Report Type: 
  Country: None (occurrence: None)
  Receive Date: 20120510
  Receipt Date: 20110816
  Transmission Date: 20120825
  Serious: Yes (Hospitalization)
  Sender: FDA-Public Use
  Company Number: USA/USA/11/0020716

PATIENT
  Age: 39 Year
  Sex: Female
  Weight: 95.2554 kg

DRUGS (5)
  1. METHIMAZOLE [Concomitant]
  2. GLYCOPYRROLATE [Suspect]
     Indication: HYPERHIDROSIS
     Dosage: 1 MG, AS REQUIRED, ORAL
     Route: 048
     Dates: start: 20110701
  3. ZYRTEC [Concomitant]
  4. PROVENTIL [Concomitant]
  5. ADVAIR HFA [Concomitant]

REACTIONS (3)
  - PRODUCT QUALITY ISSUE [None]
  - ANAPHYLACTIC REACTION [None]
  - PRODUCT SUBSTITUTION ISSUE [None]
